FAERS Safety Report 9787227 (Version 1)
Quarter: 2013Q4

REPORT INFORMATION
  Report Type: Spontaneous
  Country: JP (occurrence: JP)
  Receive Date: 20131229
  Receipt Date: 20131229
  Transmission Date: 20140711
  Serious: Yes (Hospitalization)
  Sender: FDA-Public Use
  Company Number: JP-ROCHE-1326596

PATIENT
  Age: 55 Year
  Sex: Female

DRUGS (2)
  1. AVASTIN [Suspect]
     Indication: BREAST CANCER RECURRENT
     Route: 041
     Dates: start: 20130528, end: 20131112
  2. PACLITAXEL [Concomitant]
     Indication: BREAST CANCER RECURRENT
     Dosage: DOSAGE IS UNCERTAIN.
     Route: 041
     Dates: end: 20131112

REACTIONS (1)
  - Hepatic atrophy [Not Recovered/Not Resolved]
